FAERS Safety Report 14089116 (Version 2)
Quarter: 2017Q4

REPORT INFORMATION
  Report Type: Spontaneous
  Country: US (occurrence: US)
  Receive Date: 20171014
  Receipt Date: 20171115
  Transmission Date: 20180321
  Serious: No
  Sender: FDA-Public Use
  Company Number: PHEH2017US031985

PATIENT
  Sex: Female

DRUGS (1)
  1. SWIM-EAR [Suspect]
     Active Substance: ISOPROPYL ALCOHOL
     Indication: OTITIS EXTERNA
     Dosage: UNK
     Route: 065

REACTIONS (1)
  - Ear congestion [Not Recovered/Not Resolved]
